FAERS Safety Report 11598266 (Version 2)
Quarter: 2018Q3

REPORT INFORMATION
  Report Type: Spontaneous
  Country: US (occurrence: US)
  Receive Date: 20151006
  Receipt Date: 20180703
  Transmission Date: 20181010
  Serious: Yes (Hospitalization, Other)
  Sender: FDA-Public Use
  Company Number: US-DSJP-DSU-2015-119327

PATIENT

DRUGS (5)
  1. BENICAR [Suspect]
     Active Substance: OLMESARTAN MEDOXOMIL
     Dosage: 10 MG, QD
     Route: 048
     Dates: start: 2011
  2. CELEBREX [Concomitant]
     Active Substance: CELECOXIB
     Indication: PRODUCT USED FOR UNKNOWN INDICATION
     Dosage: UNK
     Dates: start: 20120601, end: 20120611
  3. BENICAR [Suspect]
     Active Substance: OLMESARTAN MEDOXOMIL
     Indication: HYPERTENSION
     Dosage: 20 MG, QD
     Route: 048
     Dates: start: 20100427, end: 20111028
  4. BENICAR [Suspect]
     Active Substance: OLMESARTAN MEDOXOMIL
     Dosage: 40 MG, QD
     Route: 048
     Dates: start: 20100526, end: 20120623
  5. BENICAR HCT [Suspect]
     Active Substance: HYDROCHLOROTHIAZIDE\OLMESARTAN MEDOXOMIL
     Indication: HYPERTENSION
     Dosage: 20/12.5 MG, QD
     Route: 048
     Dates: start: 20070719

REACTIONS (20)
  - Pancreatic duct dilatation [Recovering/Resolving]
  - Coeliac disease [Unknown]
  - Gastrooesophageal reflux disease [Unknown]
  - Blood immunoglobulin G decreased [Unknown]
  - Constipation [Not Recovered/Not Resolved]
  - Hypotension [Unknown]
  - Rash [Recovering/Resolving]
  - Autoimmune colitis [Unknown]
  - Pancreatitis chronic [Unknown]
  - Sprue-like enteropathy [Not Recovered/Not Resolved]
  - Hiatus hernia [Unknown]
  - Haemorrhoidal haemorrhage [Unknown]
  - Arthritis [Unknown]
  - Inflammatory bowel disease [Unknown]
  - Pancreatic failure [Recovering/Resolving]
  - Pyrexia [Recovered/Resolved]
  - Deep vein thrombosis [Recovered/Resolved]
  - Diverticulitis [Unknown]
  - Hypoglycaemia [Unknown]
  - Diverticulum [Unknown]

NARRATIVE: CASE EVENT DATE: 20070803
